FAERS Safety Report 6083122-1 (Version None)
Quarter: 2009Q1

REPORT INFORMATION
  Report Type: 
  Country: None (occurrence: None)
  Receive Date: 20090213
  Receipt Date: 20090213
  Transmission Date: 20090719
  Serious: Yes (Other)
  Sender: FDA-Public Use
  Company Number: None

PATIENT
  Sex: Male
  Weight: 77.1115 kg

DRUGS (4)
  1. RAPTIVA [Suspect]
     Indication: PSORIASIS
     Dosage: 0.8 ML OR 77 MG WEEKLY SQ INCREASED TO 125MG WEEKLY SQ
     Route: 058
     Dates: start: 20040607, end: 20080801
  2. CORMAX SOLUTION [Concomitant]
  3. BENZASHAVE [Concomitant]
  4. TEMORATE OINTMENT [Concomitant]

REACTIONS (1)
  - DIFFUSE LARGE B-CELL LYMPHOMA [None]
